FAERS Safety Report 10050104 (Version 1)
Quarter: 2014Q1

REPORT INFORMATION
  Report Type: Spontaneous
  Country: US (occurrence: None)
  Receive Date: 20140328
  Receipt Date: 20140328
  Transmission Date: 20141002
  Serious: Yes (Death, Hospitalization)
  Sender: FDA-Public Use
  Company Number: AUR-APL-2014-03784

PATIENT
  Age: 66 Year
  Sex: Female

DRUGS (1)
  1. METFORMIN [Suspect]
     Indication: PRODUCT USED FOR UNKNOWN INDICATION
     Route: 048

REACTIONS (17)
  - Nausea [None]
  - Vomiting [None]
  - Diarrhoea [None]
  - Abdominal tenderness [None]
  - Tachypnoea [None]
  - Hyperventilation [None]
  - Blood glucose increased [None]
  - Culture urine positive [None]
  - Klebsiella test positive [None]
  - Metabolic acidosis [None]
  - Gastroenteritis [None]
  - Dehydration [None]
  - Dialysis [None]
  - Ventricular fibrillation [None]
  - Ventricular tachycardia [None]
  - Cardiac arrest [None]
  - Toxicity to various agents [None]
